FAERS Safety Report 5066007-9 (Version None)
Quarter: 2006Q3

REPORT INFORMATION
  Report Type: 
  Country: None (occurrence: None)
  Receive Date: 20060726
  Receipt Date: 20060714
  Transmission Date: 20061208
  Serious: Yes (Hospitalization, Disabling)
  Sender: FDA-Public Use
  Company Number: 2006088247

PATIENT
  Age: 7 Year
  Sex: Female
  Weight: 22.9 kg

DRUGS (1)
  1. GENOTROPIN [Suspect]
     Indication: TURNER'S SYNDROME
     Dates: start: 20030325

REACTIONS (1)
  - ADENOIDAL HYPERTROPHY [None]
